FAERS Safety Report 15378057 (Version 2)
Quarter: 2018Q4

REPORT INFORMATION
  Report Type: Spontaneous
  Country: US (occurrence: US)
  Receive Date: 20180913
  Receipt Date: 20181001
  Transmission Date: 20190204
  Serious: No
  Sender: FDA-Public Use
  Company Number: US-VERTEX PHARMACEUTICALS-2018-003243

PATIENT
  Sex: Female

DRUGS (1)
  1. SYMDEKO [Suspect]
     Active Substance: IVACAFTOR\TEZACAFTOR
     Indication: CYSTIC FIBROSIS
     Dosage: 100 MG TEZACAFTOR/150 MG IVACAFTOR AND 150 MG IVACAFTOR (FREQUENCY UNSPECIFIED)
     Route: 048
     Dates: start: 20180418, end: 20180730

REACTIONS (4)
  - Respiratory tract congestion [Not Recovered/Not Resolved]
  - Dysmenorrhoea [Unknown]
  - Nausea [Unknown]
  - Menstrual disorder [Not Recovered/Not Resolved]

NARRATIVE: CASE EVENT DATE: 2018
